FAERS Safety Report 21187651 (Version 1)
Quarter: 2022Q3

REPORT INFORMATION
  Report Type: Spontaneous
  Country: None (occurrence: US)
  Receive Date: 20220808
  Receipt Date: 20220808
  Transmission Date: 20221027
  Serious: Yes (Other)
  Sender: FDA-Public Use
  Company Number: US-Edgewell Personal Care, LLC-2131619

PATIENT
  Age: 40 Year
  Sex: Male

DRUGS (1)
  1. BANANA BOAT (AVOBENZONE\HOMOSALATE\OCTOCRYLENE) [Suspect]
     Active Substance: AVOBENZONE\HOMOSALATE\OCTOCRYLENE
     Indication: Prophylaxis against solar radiation
     Route: 061
     Dates: start: 20220722

REACTIONS (6)
  - Cataract [Unknown]
  - Eye irritation [Unknown]
  - Corneal oedema [Unknown]
  - Vision blurred [Unknown]
  - Eye pain [Unknown]
  - Blindness [Unknown]

NARRATIVE: CASE EVENT DATE: 20220722
